FAERS Safety Report 10450645 (Version 2)
Quarter: 2014Q4

REPORT INFORMATION
  Report Type: Spontaneous
  Country: US (occurrence: US)
  Receive Date: 20140912
  Receipt Date: 20141118
  Transmission Date: 20150528
  Serious: Yes (Hospitalization)
  Sender: FDA-Public Use
  Company Number: US-BRISTOL-MYERS SQUIBB COMPANY-21363973

PATIENT
  Age: 47 Year
  Sex: Female
  Weight: 87.98 kg

DRUGS (6)
  1. CYMBALTA [Concomitant]
     Active Substance: DULOXETINE HYDROCHLORIDE
  2. METFORMIN HCL [Concomitant]
     Active Substance: METFORMIN HYDROCHLORIDE
  3. BYDUREON [Suspect]
     Active Substance: EXENATIDE
     Indication: TYPE 2 DIABETES MELLITUS
     Route: 058
     Dates: start: 20140522, end: 2014
  4. ATORVASTATIN [Concomitant]
     Active Substance: ATORVASTATIN
  5. VITAMIN D3 [Concomitant]
     Active Substance: CHOLECALCIFEROL
  6. BABY ASPIRIN [Concomitant]
     Active Substance: ASPIRIN

REACTIONS (1)
  - Helicobacter gastritis [Recovered/Resolved]

NARRATIVE: CASE EVENT DATE: 2014
